FAERS Safety Report 17670945 (Version 1)
Quarter: 2020Q2

REPORT INFORMATION
  Report Type: Spontaneous
  Country: EG (occurrence: EG)
  Receive Date: 20200415
  Receipt Date: 20200415
  Transmission Date: 20200713
  Serious: Yes (Other)
  Sender: FDA-Public Use
  Company Number: EG-HIKMA PHARMACEUTICALS USA INC.-EG-H14001-20-01800

PATIENT
  Age: 45 Year
  Sex: Female

DRUGS (1)
  1. UNISTIN [Suspect]
     Active Substance: CISPLATIN
     Indication: UTERINE CANCER
     Dosage: 10 MG/ 10 ML
     Route: 042

REACTIONS (3)
  - Anaemia [Recovered/Resolved]
  - Headache [Unknown]
  - Pigmentation disorder [Unknown]
